FAERS Safety Report 12809797 (Version 1)
Quarter: 2016Q4

REPORT INFORMATION
  Report Type: Report from Study
  Country: US (occurrence: US)
  Receive Date: 20161005
  Receipt Date: 20161005
  Transmission Date: 20170207
  Serious: Yes (Hospitalization, Disabling, Other)
  Sender: FDA-Public Use
  Company Number: US-ROCHE-1372466

PATIENT
  Age: 57 Year
  Sex: Female
  Weight: 53.6 kg

DRUGS (5)
  1. PACLITAXEL. [Suspect]
     Active Substance: PACLITAXEL
     Dosage: CYCLE 1 AND CYCLE 2-6
     Route: 033
  2. BEVACIZUMAB [Suspect]
     Active Substance: BEVACIZUMAB
     Indication: OVARIAN EPITHELIAL CANCER
     Dosage: CYCLE 2-6, CYCLE 7-22?LAST DATE PRIOR TO SAE: 06/FEB/2014, 08/JAN/2015 TOTAL DOSE: 804 MG, LAST TREA
     Route: 042
     Dates: start: 20131205
  3. PACLITAXEL. [Suspect]
     Active Substance: PACLITAXEL
     Indication: OVARIAN EPITHELIAL CANCER
     Dosage: CYCLE 1 AND CYCLE 2-6?LAST DATE PRIOR TO SAE: 16/FEB/2014, 10/APR/2014
     Route: 042
     Dates: start: 20131205
  4. CISPLATIN. [Suspect]
     Active Substance: CISPLATIN
     Indication: OVARIAN EPITHELIAL CANCER
     Dosage: CYCLE 1 AND CYCLE 2-6?LAST DATE PRIOR TO SAE: 07/FEB/2014, 04/APR/2013
     Route: 033
     Dates: start: 20131205
  5. VELIPARIB [Suspect]
     Active Substance: VELIPARIB
     Indication: OVARIAN EPITHELIAL CANCER
     Dosage: CYCLE1, CYCLE 2-6?LAST DATE PRIOR TO SAE: 20/FEB/2014, 11/APR/2013
     Route: 048
     Dates: start: 20131205

REACTIONS (15)
  - Platelet count decreased [Unknown]
  - Vomiting [Recovered/Resolved]
  - White blood cell count decreased [Unknown]
  - Syncope [Recovering/Resolving]
  - Gastrointestinal pain [Recovered/Resolved]
  - Small intestinal obstruction [Not Recovered/Not Resolved]
  - Hypokalaemia [Recovering/Resolving]
  - Neutrophil count decreased [Unknown]
  - Pyrexia [Recovering/Resolving]
  - Nausea [Recovering/Resolving]
  - Abdominal pain [Recovered/Resolved]
  - Anaemia [Unknown]
  - Hypokalaemia [Unknown]
  - Pelvic infection [Recovering/Resolving]
  - Hypertension [Recovering/Resolving]

NARRATIVE: CASE EVENT DATE: 20140206
